FAERS Safety Report 21498960 (Version 1)
Quarter: 2022Q4

REPORT INFORMATION
  Report Type: Other
  Country: HK (occurrence: None)
  Receive Date: 20221024
  Receipt Date: 20221024
  Transmission Date: 20230113
  Serious: Yes (Other)
  Sender: FDA-Public Use
  Company Number: HK-ROCHE-3203361

PATIENT
  Age: 57 Year
  Sex: Male

DRUGS (6)
  1. RITUXIMAB [Suspect]
     Active Substance: RITUXIMAB
     Indication: Chronic lymphocytic leukaemia refractory
     Route: 065
  2. FLUDARABINE [Suspect]
     Active Substance: FLUDARABINE PHOSPHATE
     Indication: Chronic lymphocytic leukaemia refractory
     Dosage: FIRST LINE THERAPY: RECEIVED SIX CYCLES
     Route: 065
     Dates: start: 2004
  3. FLUDARABINE [Suspect]
     Active Substance: FLUDARABINE PHOSPHATE
     Dosage: RECHALLENGED WITH FLUDARABINE
     Route: 065
     Dates: start: 200808
  4. FLUDARABINE [Suspect]
     Active Substance: FLUDARABINE PHOSPHATE
     Dosage: STANDARD OF CARE
     Route: 065
     Dates: start: 2011
  5. CYCLOPHOSPHAMIDE [Suspect]
     Active Substance: CYCLOPHOSPHAMIDE
     Indication: Chronic lymphocytic leukaemia refractory
     Dosage: STANDARD OF CARE
     Route: 065
     Dates: start: 2011
  6. IBRUTINIB [Concomitant]
     Active Substance: IBRUTINIB
     Dates: start: 202106

REACTIONS (1)
  - Disease progression [Unknown]
